FAERS Safety Report 13302448 (Version 2)
Quarter: 2017Q1

REPORT INFORMATION
  Report Type: Other
  Country: US (occurrence: US)
  Receive Date: 20170307
  Receipt Date: 20170330
  Transmission Date: 20170428
  Serious: Yes (Hospitalization, Other)
  Sender: FDA-Public Use
  Company Number: US-ACORDA-ACO_134542_2017

PATIENT
  Age: 46 Year
  Sex: Male

DRUGS (2)
  1. COPAXONE [Concomitant]
     Active Substance: GLATIRAMER ACETATE
     Indication: MULTIPLE SCLEROSIS
     Dosage: UNK
     Route: 065
  2. AMPYRA [Suspect]
     Active Substance: DALFAMPRIDINE
     Indication: PRODUCT USED FOR UNKNOWN INDICATION
     Dosage: 10 MG, BID
     Route: 065
     Dates: start: 20161201, end: 20170302

REACTIONS (8)
  - Multiple sclerosis relapse [Recovering/Resolving]
  - Chest pain [Unknown]
  - Memory impairment [Recovering/Resolving]
  - Brain neoplasm malignant [Unknown]
  - Echocardiogram abnormal [Unknown]
  - Condition aggravated [Recovering/Resolving]
  - Adverse drug reaction [Recovering/Resolving]
  - Multiple sclerosis relapse [Unknown]

NARRATIVE: CASE EVENT DATE: 201701
